FAERS Safety Report 8849647 (Version 2)
Quarter: 2012Q4

REPORT INFORMATION
  Report Type: 
  Country: US (occurrence: US)
  Receive Date: 20121019
  Receipt Date: 20121220
  Transmission Date: 20130627
  Serious: No
  Sender: FDA-Public Use
  Company Number: US-VERTEX PHARMACEUTICAL INC.-2012-022778

PATIENT
  Sex: Male
  Weight: 115.5 kg

DRUGS (4)
  1. VX-950 (TELAPREVIR) [Suspect]
     Indication: HEPATITIS C
     Dosage: 750 mg, tid
     Route: 048
     Dates: start: 20120904, end: 201211
  2. PEGASYS [Suspect]
     Indication: HEPATITIS C
     Dosage: 180 ?g, qw
     Route: 058
     Dates: start: 20120904
  3. RIBASPHERE [Suspect]
     Indication: HEPATITIS C
     Dosage: 600 mg am/800 mg pm
     Route: 048
     Dates: start: 20120904
  4. RIBASPHERE [Suspect]
     Dosage: 600 mg, qd
     Route: 048

REACTIONS (3)
  - Fatigue [Unknown]
  - Red blood cell count decreased [Unknown]
  - Nausea [Unknown]
